FAERS Safety Report 8874737 (Version 3)
Quarter: 2013Q1

REPORT INFORMATION
  Report Type: Spontaneous
  Country: US (occurrence: US)
  Receive Date: 20121023
  Receipt Date: 20130125
  Transmission Date: 20140127
  Serious: Yes (Other)
  Sender: FDA-Public Use
  Company Number: US-FRI-1000039478

PATIENT
  Age: 42 Year
  Sex: Male

DRUGS (2)
  1. VIIBRYD [Suspect]
     Dates: start: 20120911, end: 20121011
  2. LISINOPRIL [Concomitant]
     Dosage: 10MG

REACTIONS (2)
  - Suicidal ideation [Recovered/Resolved]
  - Anxiety [Recovered/Resolved]
